FAERS Safety Report 18497946 (Version 1)
Quarter: 2020Q4

REPORT INFORMATION
  Report Type: Spontaneous
  Country: FR (occurrence: FR)
  Receive Date: 20201112
  Receipt Date: 20201112
  Transmission Date: 20210114
  Serious: Yes (Hospitalization)
  Sender: FDA-Public Use
  Company Number: FR-TEVA-2020-FR-1847244

PATIENT
  Age: 50 Year
  Sex: Female
  Weight: 48 kg

DRUGS (5)
  1. BIPROFENID LP 100 MG, COMPRIME SECABLE A LIBERATION PROLONGEE [Suspect]
     Active Substance: KETOPROFEN
     Indication: INTERVERTEBRAL DISC DISORDER
     Dosage: UNIT DOSE : 1 DOSAGE FORMS
     Route: 048
     Dates: start: 20200803, end: 20200810
  2. PARACETAMOL [Concomitant]
     Active Substance: ACETAMINOPHEN
     Dosage: UNIT DOSE : 1500 MG
     Route: 048
     Dates: start: 20200729
  3. SPIRONOLACTONE. [Suspect]
     Active Substance: SPIRONOLACTONE
     Indication: CIRRHOSIS ALCOHOLIC
     Dosage: UNIT DOSE : 75 MG
     Route: 048
     Dates: start: 20200709, end: 20200813
  4. LASILIX 40 MG, COMPRIME SECABLE [Concomitant]
     Active Substance: FUROSEMIDE
     Dosage: UNIT DOSE : 1 DOSAGE FORMS
     Route: 048
     Dates: start: 20200709
  5. LASILIX FAIBLE 20 MG, COMPRIME [Concomitant]
     Active Substance: FUROSEMIDE
     Dosage: UNIT DOSE : 1 DOSAGE FORMS
     Route: 048
     Dates: start: 20200709, end: 20200813

REACTIONS (1)
  - Acute kidney injury [Recovered/Resolved]

NARRATIVE: CASE EVENT DATE: 20200811
